FAERS Safety Report 6066049-0 (Version None)
Quarter: 2009Q1

REPORT INFORMATION
  Report Type: 
  Country: None (occurrence: None)
  Receive Date: 20090130
  Receipt Date: 20090122
  Transmission Date: 20090719
  Serious: Yes (Life-Threatening, Hospitalization)
  Sender: FDA-Public Use
  Company Number: 2008S1000337

PATIENT
  Age: 43 Year
  Sex: Male
  Weight: 79 kg

DRUGS (9)
  1. CUBICIN [Suspect]
     Indication: ABSCESS
     Dosage: 6.7 MG/KG; IV
     Route: 042
     Dates: start: 20080120, end: 20080127
  2. CUBICIN [Suspect]
     Indication: BACTERAEMIA
     Dosage: 6.7 MG/KG; IV
     Route: 042
     Dates: start: 20080120, end: 20080127
  3. CUBICIN [Suspect]
     Indication: STAPHYLOCOCCAL INFECTION
     Dosage: 6.7 MG/KG; IV
     Route: 042
     Dates: start: 20080120, end: 20080127
  4. MEROPENEM [Concomitant]
  5. TIGECYCLINE [Concomitant]
  6. ZOSYN [Concomitant]
  7. TEICOPLANIN [Concomitant]
  8. MOXIFLOXACIN HCL [Concomitant]
  9. RIFAMPIN [Concomitant]

REACTIONS (4)
  - CARDIAC FAILURE ACUTE [None]
  - CARDIOGENIC SHOCK [None]
  - LACTIC ACIDOSIS [None]
  - MYOCARDITIS [None]
